FAERS Safety Report 5058057-3 (Version None)
Quarter: 2006Q3

REPORT INFORMATION
  Report Type: 
  Country: None (occurrence: None)
  Receive Date: 20060721
  Receipt Date: 20060711
  Transmission Date: 20061208
  Serious: Yes (Disabling)
  Sender: FDA-Public Use
  Company Number: 2006AC01288

PATIENT
  Age: 58 Year
  Sex: Female

DRUGS (1)
  1. ARIMIDEX [Suspect]
     Route: 048
     Dates: start: 20050615, end: 20050929

REACTIONS (4)
  - ARTHROPATHY [None]
  - FATIGUE [None]
  - MENTAL DISORDER [None]
  - WEIGHT INCREASED [None]
